FAERS Safety Report 24574197 (Version 2)
Quarter: 2024Q4

REPORT INFORMATION
  Report Type: Spontaneous
  Country: FR (occurrence: FR)
  Receive Date: 20241104
  Receipt Date: 20241121
  Transmission Date: 20250115
  Serious: Yes (Other)
  Sender: TEVA
  Company Number: FR-TEVA-VS-3245934

PATIENT
  Age: 38 Year
  Sex: Male

DRUGS (1)
  1. DOXYCYCLINE [Suspect]
     Active Substance: DOXYCYCLINE
     Indication: Sexually transmitted disease
     Route: 065

REACTIONS (1)
  - Fixed eruption [Recovering/Resolving]
